FAERS Safety Report 5895140-4 (Version None)
Quarter: 2008Q3

REPORT INFORMATION
  Report Type: 
  Country: None (occurrence: None)
  Receive Date: 20080924
  Receipt Date: 20080923
  Transmission Date: 20090109
  Serious: Yes (Other)
  Sender: FDA-Public Use
  Company Number: AU-WYE-G02133808

PATIENT
  Sex: Male

DRUGS (1)
  1. EFFEXOR XR [Suspect]
     Indication: DEPRESSION
     Dosage: 75 MG AT 8 AM DAILY
     Route: 048
     Dates: start: 20080831, end: 20080921

REACTIONS (9)
  - ANOREXIA [None]
  - CONDITION AGGRAVATED [None]
  - CONVULSION [None]
  - DIZZINESS [None]
  - DRUG WITHDRAWAL SYNDROME [None]
  - HEADACHE [None]
  - POOR QUALITY SLEEP [None]
  - ROAD TRAFFIC ACCIDENT [None]
  - SOMNOLENCE [None]
